FAERS Safety Report 7908607-1 (Version None)
Quarter: 2011Q4

REPORT INFORMATION
  Report Type: 
  Country: None (occurrence: None)
  Receive Date: 20111111
  Receipt Date: 20111107
  Transmission Date: 20120403
  Serious: Yes (Other)
  Sender: FDA-Public Use
  Company Number: AT-PFIZER INC-2011271808

PATIENT
  Sex: Female

DRUGS (1)
  1. AROMASIN [Suspect]
     Dosage: UNK
     Dates: start: 20020101

REACTIONS (1)
  - VAGINAL HAEMORRHAGE [None]
